FAERS Safety Report 7601811-1 (Version None)
Quarter: 2011Q3

REPORT INFORMATION
  Report Type: 
  Country: None (occurrence: None)
  Receive Date: 20110711
  Receipt Date: 20110706
  Transmission Date: 20111222
  Serious: No
  Sender: FDA-Public Use
  Company Number: US-PFIZER INC-2011107368

PATIENT
  Sex: Male
  Weight: 88.435 kg

DRUGS (1)
  1. ZOLOFT [Suspect]
     Indication: DEPRESSION
     Dosage: 100 MG, UNK
     Route: 048

REACTIONS (4)
  - WEIGHT INCREASED [None]
  - FATIGUE [None]
  - DRUG INEFFECTIVE [None]
  - ASTHENIA [None]
